FAERS Safety Report 7190708-X (Version None)
Quarter: 2010Q4

REPORT INFORMATION
  Report Type: 
  Country: None (occurrence: None)
  Receive Date: 20101221
  Receipt Date: 20101221
  Transmission Date: 20110411
  Serious: Yes (Hospitalization)
  Sender: FDA-Public Use
  Company Number: None

PATIENT
  Age: 70 Year
  Sex: Male
  Weight: 70 kg

DRUGS (3)
  1. VORINOSTAT [Suspect]
     Indication: MULTIPLE MYELOMA
     Dosage: 300MG PO DAYS 1-8
     Route: 048
  2. BORTEZOMIB [Suspect]
     Dosage: 1MG/M2 IV D1, 4, 8, 11
     Route: 042
  3. DOXIL [Suspect]
     Dosage: 22.5MG/M2 IV D4
     Route: 042

REACTIONS (6)
  - DRUG DOSE OMISSION [None]
  - DYSPNOEA EXERTIONAL [None]
  - EJECTION FRACTION DECREASED [None]
  - HYPERTENSION [None]
  - LEFT VENTRICULAR DYSFUNCTION [None]
  - TREATMENT NONCOMPLIANCE [None]
